FAERS Safety Report 4416906-3 (Version None)
Quarter: 2004Q3

REPORT INFORMATION
  Report Type: 
  Country: None (occurrence: None)
  Receive Date: 20040804
  Receipt Date: 20040804
  Transmission Date: 20050211
  Serious: Yes (Other)
  Sender: FDA-Public Use
  Company Number: None

PATIENT
  Sex: Female
  Weight: 49.8957 kg

DRUGS (1)
  1. PROZAC [Suspect]
     Indication: DEPRESSION
     Dosage: 20 MG DAILY ORAL
     Route: 048
     Dates: start: 20040506, end: 20040519

REACTIONS (6)
  - ASTHENIA [None]
  - DISSOCIATION [None]
  - FEELING ABNORMAL [None]
  - FEELING HOT AND COLD [None]
  - TREMOR [None]
  - VISION BLURRED [None]
